FAERS Safety Report 24916313 (Version 1)
Quarter: 2025Q1

REPORT INFORMATION
  Report Type: Spontaneous
  Country: US (occurrence: None)
  Receive Date: 20250131
  Receipt Date: 20250131
  Transmission Date: 20250408
  Serious: No
  Sender: FDA-CTU
  Company Number: None

PATIENT
  Age: 73 Year
  Sex: Male
  Weight: 98 kg

DRUGS (1)
  1. PIOGLITAZONE [Suspect]
     Active Substance: PIOGLITAZONE
     Dosage: FREQUENCY : DAILY;?
     Route: 048

REACTIONS (3)
  - Neoplasm malignant [None]
  - Oedema peripheral [None]
  - Bladder cancer [None]

NARRATIVE: CASE EVENT DATE: 20240725
